FAERS Safety Report 22912743 (Version 7)
Quarter: 2023Q4

REPORT INFORMATION
  Report Type: Spontaneous
  Country: CA (occurrence: CA)
  Receive Date: 20230906
  Receipt Date: 20231108
  Transmission Date: 20240110
  Serious: Yes (Other)
  Sender: FDA-Public Use
  Company Number: CA-PFIZER INC-202300288132

PATIENT
  Age: 34 Year
  Sex: Male

DRUGS (6)
  1. ABRILADA [Suspect]
     Active Substance: ADALIMUMAB-AFZB
     Indication: Crohn^s disease
     Dosage: 40 MG, EVERY 2 WEEKS (INDUCTION 160MG WEEK 0, 80MG WEEK 2 THEN 40MG EVERY 2 WEEKS)
     Route: 058
     Dates: start: 20230823
  2. ABRILADA [Suspect]
     Active Substance: ADALIMUMAB-AFZB
     Dosage: 40 MG, EVERY 2 WEEKS (INDUCTION 160MG WEEK 0, 80MG WEEK 2 THEN 40MG EVERY 2 WEEKS)
     Route: 058
     Dates: start: 20230823, end: 2023
  3. AZATHIOPRINE [Concomitant]
     Active Substance: AZATHIOPRINE
     Dosage: 1 DF
     Dates: start: 2022
  4. ENROFLOXACIN [Concomitant]
     Dosage: 1 DF
  5. ENROFLOXACIN [Concomitant]
     Dosage: 1 DF
  6. METRONIDAZOLE [Concomitant]
     Active Substance: METRONIDAZOLE
     Dosage: 1 DF

REACTIONS (11)
  - Pilonidal disease [Unknown]
  - Crohn^s disease [Not Recovered/Not Resolved]
  - Therapeutic response shortened [Unknown]
  - Nausea [Not Recovered/Not Resolved]
  - Fatigue [Unknown]
  - Decreased appetite [Not Recovered/Not Resolved]
  - Constipation [Not Recovered/Not Resolved]
  - Pilonidal disease [Unknown]
  - Malaise [Unknown]
  - Swelling [Unknown]
  - Product dose omission issue [Unknown]

NARRATIVE: CASE EVENT DATE: 20230801
